FAERS Safety Report 8556808-4 (Version None)
Quarter: 2012Q3

REPORT INFORMATION
  Report Type: 
  Country: None (occurrence: None)
  Receive Date: 20120801
  Receipt Date: 20120731
  Transmission Date: 20120928
  Serious: Yes (Life-Threatening, Hospitalization)
  Sender: FDA-Public Use
  Company Number: GR-ABBOTT-11P-066-0732548-00

PATIENT
  Age: 82 Year
  Sex: Female

DRUGS (6)
  1. ZEMPLAR [Suspect]
     Indication: RENAL FAILURE CHRONIC
     Route: 048
     Dates: start: 20110511
  2. PLAVIX [Concomitant]
     Indication: CORONARY ARTERY DISEASE
     Route: 048
     Dates: start: 20090616
  3. ALLOPURINOL [Concomitant]
     Indication: HYPERURICAEMIA
     Route: 048
     Dates: start: 20100511
  4. ADALAT CC [Concomitant]
     Indication: HYPERTENSION
     Route: 048
     Dates: start: 20080912
  5. LIPITOR [Concomitant]
     Indication: HYPERLIPIDAEMIA
     Route: 048
     Dates: start: 20080912
  6. ARANESP [Concomitant]
     Indication: ANAEMIA
     Route: 058
     Dates: start: 20110129

REACTIONS (4)
  - CARDIAC FAILURE [None]
  - ACUTE PULMONARY OEDEMA [None]
  - RESPIRATORY TRACT INFECTION [None]
  - RENAL FAILURE CHRONIC [None]
